FAERS Safety Report 5730473-3 (Version None)
Quarter: 2008Q2

REPORT INFORMATION
  Report Type: 
  Country: None (occurrence: None)
  Receive Date: 20080507
  Receipt Date: 20080408
  Transmission Date: 20081010
  Serious: Yes (Hospitalization)
  Sender: FDA-Public Use
  Company Number: US-JNJFOC-20080403672

PATIENT
  Sex: Female
  Weight: 158.76 kg

DRUGS (2)
  1. ORTHO EVRA [Suspect]
     Indication: DRUG USE FOR UNKNOWN INDICATION
     Route: 062
  2. ALBUTEROL [Concomitant]
     Indication: ASTHMA

REACTIONS (2)
  - MENOMETRORRHAGIA [None]
  - THROMBOPHLEBITIS SUPERFICIAL [None]
